FAERS Safety Report 6608151-8 (Version None)
Quarter: 2010Q1

REPORT INFORMATION
  Report Type: 
  Country: None (occurrence: None)
  Receive Date: 20100301
  Receipt Date: 20100218
  Transmission Date: 20100710
  Serious: Yes (Death, Life-Threatening, Hospitalization)
  Sender: FDA-Public Use
  Company Number: US-BRISTOL-MYERS SQUIBB COMPANY-14984272

PATIENT
  Age: 79 Year
  Sex: Female
  Weight: 64 kg

DRUGS (12)
  1. PACLITAXEL [Suspect]
     Indication: NON-SMALL CELL LUNG CANCER
     Dosage: LAST DOSE: 28JAN2010
     Route: 042
     Dates: start: 20091217
  2. CARBOPLATIN [Suspect]
     Indication: NON-SMALL CELL LUNG CANCER
     Dosage: 6 DF = AUC 6 LAST DOSE: 28JAN2010
     Route: 042
     Dates: start: 20091217
  3. BEVACIZUMAB [Suspect]
     Indication: NON-SMALL CELL LUNG CANCER
     Dosage: LAST DOSE: 28JAN2010
     Route: 042
     Dates: start: 20091217
  4. OXYCONTIN [Concomitant]
     Indication: OSTEOPOROSIS
     Dates: start: 20091217
  5. FOSAMAX [Concomitant]
     Indication: OSTEOPOROSIS
     Dates: start: 20091102, end: 20091211
  6. FOLIC ACID [Concomitant]
     Indication: PREMEDICATION
     Dates: start: 20091210
  7. PRILOSEC [Concomitant]
     Indication: PREMEDICATION
     Dates: start: 20091204
  8. DEXAMETHASONE [Concomitant]
     Indication: PREMEDICATION
     Dates: start: 20091216
  9. PREDNISONE [Concomitant]
     Dates: start: 20091102
  10. LISINOPRIL [Concomitant]
     Dates: start: 20091102
  11. REGLAN [Concomitant]
     Dates: start: 20091204
  12. CENTRUM [Concomitant]
     Dates: start: 20091208

REACTIONS (2)
  - CEREBROVASCULAR ACCIDENT [None]
  - DEATH [None]
